FAERS Safety Report 25567949 (Version 1)
Quarter: 2025Q3

REPORT INFORMATION
  Report Type: Spontaneous
  Country: US (occurrence: None)
  Receive Date: 20250716
  Receipt Date: 20250716
  Transmission Date: 20251020
  Serious: Yes (Hospitalization)
  Sender: FDA-CTU
  Company Number: None

PATIENT
  Age: 80 Year
  Sex: Female
  Weight: 72 kg

DRUGS (1)
  1. TOBRAMYCIN [Suspect]
     Active Substance: TOBRAMYCIN
     Dosage: FREQUENCY : TWICE A DAY;?
     Route: 055
     Dates: start: 20250529, end: 20250615

REACTIONS (6)
  - Chest discomfort [None]
  - Heart rate increased [None]
  - Muscular weakness [None]
  - Therapy cessation [None]
  - Therapy change [None]
  - Decreased activity [None]

NARRATIVE: CASE EVENT DATE: 20250614
